FAERS Safety Report 9174479 (Version 1)
Quarter: 2013Q1

REPORT INFORMATION
  Report Type: Spontaneous
  Country: CA (occurrence: None)
  Receive Date: 20130313
  Receipt Date: 20130313
  Transmission Date: 20140127
  Serious: Yes (Other)
  Sender: FDA-Public Use
  Company Number: IBUP20130003

PATIENT
  Age: 12 Year
  Sex: Male

DRUGS (1)
  1. IBUPROFEN [Suspect]
     Indication: HEADACHE
     Dosage: 200 MG, ONE TIME, ORAL
     Route: 048

REACTIONS (5)
  - Anaphylactic reaction [None]
  - Urticaria [None]
  - Conjunctivitis [None]
  - Burning sensation [None]
  - Angioedema [None]
